FAERS Safety Report 19173021 (Version 1)
Quarter: 2021Q2

REPORT INFORMATION
  Report Type: Spontaneous
  Country: US (occurrence: US)
  Receive Date: 20210422
  Receipt Date: 20210422
  Transmission Date: 20210717
  Serious: Yes (Hospitalization)
  Sender: FDA-Public Use
  Company Number: None

PATIENT
  Age: 71 Year
  Sex: Female

DRUGS (10)
  1. HYDROCO/APAP [Concomitant]
     Active Substance: ACETAMINOPHEN\HYDROCODONE
     Dates: start: 20210302
  2. HYDROCO/APAP [Concomitant]
     Active Substance: ACETAMINOPHEN\HYDROCODONE
     Dates: start: 20210324
  3. SIMVASTATIN. [Concomitant]
     Active Substance: SIMVASTATIN
     Dates: start: 20201116
  4. MONTELUKAST [Concomitant]
     Active Substance: MONTELUKAST SODIUM
     Dates: start: 20200420
  5. PREDNISONE. [Concomitant]
     Active Substance: PREDNISONE
     Dates: start: 20210102
  6. PREDNISONE. [Concomitant]
     Active Substance: PREDNISONE
     Dates: start: 20210315
  7. ONDANSETRON [Concomitant]
     Active Substance: ONDANSETRON
     Dates: start: 20210414
  8. NUCALA [Suspect]
     Active Substance: MEPOLIZUMAB
     Indication: ASTHMA
     Dosage: ?          OTHER FREQUENCY:EVERY 4 WEEKS;?
     Route: 058
     Dates: start: 20210330
  9. PREDNISONE. [Concomitant]
     Active Substance: PREDNISONE
     Dates: start: 20210104
  10. ALBUTEROL. [Concomitant]
     Active Substance: ALBUTEROL
     Dates: start: 20210409

REACTIONS (1)
  - Sepsis [None]

NARRATIVE: CASE EVENT DATE: 20210421
